FAERS Safety Report 24571162 (Version 1)
Quarter: 2024Q4

REPORT INFORMATION
  Report Type: Spontaneous
  Country: FR (occurrence: FR)
  Receive Date: 20241101
  Receipt Date: 20241101
  Transmission Date: 20250115
  Serious: Yes (Hospitalization, Other)
  Sender: ALEXION PHARMACEUTICALS
  Company Number: None

PATIENT
  Age: 66 Year
  Weight: 148 kg

DRUGS (30)
  1. DAPAGLIFLOZIN [Suspect]
     Active Substance: DAPAGLIFLOZIN
  2. DAPAGLIFLOZIN [Suspect]
     Active Substance: DAPAGLIFLOZIN
  3. DAPAGLIFLOZIN [Suspect]
     Active Substance: DAPAGLIFLOZIN
  4. DAPAGLIFLOZIN [Suspect]
     Active Substance: DAPAGLIFLOZIN
  5. AMIODARONE [Suspect]
     Active Substance: AMIODARONE
     Indication: Hypothyroidism
  6. AMIODARONE [Suspect]
     Active Substance: AMIODARONE
  7. AMLODIPINE [Suspect]
     Active Substance: AMLODIPINE BESYLATE
     Indication: Hypertension
  8. AMLODIPINE [Suspect]
     Active Substance: AMLODIPINE BESYLATE
  9. IRBESARTAN [Suspect]
     Active Substance: IRBESARTAN
     Indication: Diabetes mellitus
  10. IRBESARTAN [Suspect]
     Active Substance: IRBESARTAN
  11. URAPIDIL [Suspect]
     Active Substance: URAPIDIL
     Indication: Hypertension
  12. URAPIDIL [Suspect]
     Active Substance: URAPIDIL
  13. LEVOTHYROXINE [Concomitant]
     Active Substance: LEVOTHYROXINE
  14. LEVOTHYROXINE [Concomitant]
     Active Substance: LEVOTHYROXINE
  15. XARELTO [Concomitant]
     Active Substance: RIVAROXABAN
  16. XARELTO [Concomitant]
     Active Substance: RIVAROXABAN
  17. FUROSEMIDE [Concomitant]
     Active Substance: FUROSEMIDE
  18. FUROSEMIDE [Concomitant]
     Active Substance: FUROSEMIDE
  19. SYMBICORT [Concomitant]
     Active Substance: BUDESONIDE\FORMOTEROL FUMARATE DIHYDRATE
  20. SYMBICORT [Concomitant]
     Active Substance: BUDESONIDE\FORMOTEROL FUMARATE DIHYDRATE
  21. SPIRIVA [Concomitant]
     Active Substance: TIOTROPIUM BROMIDE MONOHYDRATE
  22. SPIRIVA [Concomitant]
     Active Substance: TIOTROPIUM BROMIDE MONOHYDRATE
  23. ALLOPURINOL [Concomitant]
     Active Substance: ALLOPURINOL
  24. ALLOPURINOL [Concomitant]
     Active Substance: ALLOPURINOL
  25. HUMALOG [Concomitant]
     Active Substance: INSULIN LISPRO
  26. HUMALOG [Concomitant]
     Active Substance: INSULIN LISPRO
  27. TRESIBA [Concomitant]
     Active Substance: INSULIN DEGLUDEC
  28. TRESIBA [Concomitant]
     Active Substance: INSULIN DEGLUDEC
  29. OZEMPIC [Concomitant]
     Active Substance: SEMAGLUTIDE
  30. OZEMPIC [Concomitant]
     Active Substance: SEMAGLUTIDE

REACTIONS (1)
  - Hepatic cytolysis [Not Recovered/Not Resolved]
